FAERS Safety Report 10143249 (Version 2)
Quarter: 2014Q2

REPORT INFORMATION
  Report Type: Report from Study
  Country: US (occurrence: US)
  Receive Date: 20140430
  Receipt Date: 20140516
  Transmission Date: 20141212
  Serious: Yes (Hospitalization)
  Sender: FDA-Public Use
  Company Number: US-SA-2014SA051643

PATIENT
  Age: 58 Year
  Sex: Female

DRUGS (3)
  1. LANTUS SOLOSTAR [Suspect]
     Indication: DIABETES MELLITUS
     Route: 065
  2. SOLOSTAR [Concomitant]
     Indication: DEVICE THERAPY
  3. ASPIRIN [Concomitant]

REACTIONS (3)
  - Road traffic accident [Unknown]
  - Cerebrovascular accident [Unknown]
  - Visual impairment [Recovering/Resolving]
